FAERS Safety Report 17761550 (Version 1)
Quarter: 2020Q2

REPORT INFORMATION
  Report Type: Spontaneous
  Country: US (occurrence: US)
  Receive Date: 20200508
  Receipt Date: 20200508
  Transmission Date: 20200714
  Serious: No
  Sender: FDA-Public Use
  Company Number: US-HTU-2020US020401

PATIENT
  Sex: Female

DRUGS (1)
  1. VALCHLOR [Suspect]
     Active Substance: MECHLORETHAMINE
     Indication: CUTANEOUS T-CELL LYMPHOMA
     Dosage: UNK, EVERY 2-3 DAYS
     Route: 061

REACTIONS (4)
  - Rash [Unknown]
  - Off label use [Unknown]
  - Drug hypersensitivity [Unknown]
  - Urticaria [Unknown]
